FAERS Safety Report 21364801 (Version 1)
Quarter: 2022Q3

REPORT INFORMATION
  Report Type: Spontaneous
  Country: US (occurrence: US)
  Receive Date: 20220922
  Receipt Date: 20220922
  Transmission Date: 20221027
  Serious: Yes (Hospitalization, Other)
  Sender: FDA-Public Use
  Company Number: US-BRISTOL-MYERS SQUIBB COMPANY-2022-110302

PATIENT
  Age: 71 Year
  Sex: Female
  Weight: 52.163 kg

DRUGS (1)
  1. IDHIFA [Suspect]
     Active Substance: ENASIDENIB MESYLATE
     Indication: Acute myeloid leukaemia
     Dosage: FREQ : DAILY
     Route: 048
     Dates: start: 201910, end: 202009

REACTIONS (4)
  - Fall [Unknown]
  - Femur fracture [Unknown]
  - Drug ineffective [Unknown]
  - Full blood count increased [Unknown]

NARRATIVE: CASE EVENT DATE: 20200501
